FAERS Safety Report 24091012 (Version 3)
Quarter: 2025Q2

REPORT INFORMATION
  Report Type: Spontaneous
  Country: JP (occurrence: JP)
  Receive Date: 20240715
  Receipt Date: 20250530
  Transmission Date: 20250716
  Serious: Yes (Life-Threatening, Other)
  Sender: PFIZER
  Company Number: JP-PFIZER INC-PV202400092226

PATIENT
  Age: 2 Year
  Sex: Male

DRUGS (5)
  1. SIROLIMUS [Suspect]
     Active Substance: SIROLIMUS
     Indication: Klippel-Trenaunay syndrome
     Dosage: 4 MG,1 D
     Route: 048
     Dates: start: 202111, end: 202405
  2. SIROLIMUS [Suspect]
     Active Substance: SIROLIMUS
     Indication: Lymphatic malformation
     Dosage: 3 MG,1 D
     Route: 048
     Dates: start: 20240522, end: 20240701
  3. SIROLIMUS [Suspect]
     Active Substance: SIROLIMUS
     Dosage: 1.5 MG,1 D
     Route: 048
     Dates: start: 20240702, end: 20240703
  4. SIROLIMUS [Suspect]
     Active Substance: SIROLIMUS
     Dosage: 2 MG,1 D
     Route: 048
     Dates: start: 20240722
  5. VINCRISTINE SULFATE [Concomitant]
     Active Substance: VINCRISTINE SULFATE
     Route: 065

REACTIONS (8)
  - Extradural haematoma [Unknown]
  - Orbital haematoma [Unknown]
  - Nephrotic syndrome [Recovering/Resolving]
  - Dysphagia [Unknown]
  - Drug level increased [Recovered/Resolved]
  - Wrong technique in product usage process [Unknown]
  - Off label use [Unknown]
  - Off label use [Unknown]

NARRATIVE: CASE EVENT DATE: 20211101
